FAERS Safety Report 4708334-8 (Version None)
Quarter: 2005Q2

REPORT INFORMATION
  Report Type: 
  Country: None (occurrence: None)
  Receive Date: 20050630
  Receipt Date: 20050616
  Transmission Date: 20051028
  Serious: Yes (Hospitalization)
  Sender: FDA-Public Use
  Company Number: THYM-10351

PATIENT
  Age: 55 Year
  Sex: Male
  Weight: 115 kg

DRUGS (35)
  1. THYMOGLOBULIN [Suspect]
     Indication: RENAL TRANSPLANT
     Dosage: 125 MG QD IV
     Route: 042
     Dates: start: 20041104, end: 20041105
  2. THYMOGLOBULIN [Suspect]
     Indication: RENAL TRANSPLANT
     Dosage: 175 MG QD IV
     Route: 042
     Dates: start: 20041107, end: 20041107
  3. MORPHINE [Concomitant]
  4. PEPCID [Concomitant]
  5. PHENERGAN [Concomitant]
  6. BENADRYL [Concomitant]
  7. DILTIAZEM [Concomitant]
  8. DOPAMINE HCL [Concomitant]
  9. REGULAR INSULIN [Concomitant]
  10. SOLU-MEDROL [Concomitant]
  11. DOCUSATE SODIUM [Concomitant]
  12. NYSTATIN [Concomitant]
  13. CELLCEPT [Concomitant]
  14. HYDRALAZINE [Concomitant]
  15. LASIX [Concomitant]
  16. CALCIUM GLUCONATE [Concomitant]
  17. KAYEXALATE [Concomitant]
  18. VERSED [Concomitant]
  19. FENTANYL [Concomitant]
  20. DIPRIVAN [Concomitant]
  21. HEPARIN [Concomitant]
  22. KANAMYCIN [Concomitant]
  23. MANNITOL [Concomitant]
  24. ALBUMIN (HUMAN) [Concomitant]
  25. ACETAMINOPHEN [Concomitant]
  26. SODIUM BICARBONATE [Concomitant]
  27. PERCOCET [Concomitant]
  28. MAGNESIUM SULFATE [Concomitant]
  29. ZAROXOLYN [Concomitant]
  30. CIPRO [Concomitant]
  31. PACERONE [Concomitant]
  32. ASPIRIN [Concomitant]
  33. ZOCOR [Concomitant]
  34. PREDNISONE [Concomitant]
  35. LISINOPRIL [Concomitant]

REACTIONS (19)
  - ACUTE RESPIRATORY DISTRESS SYNDROME [None]
  - ATRIAL FIBRILLATION [None]
  - BLOOD PRESSURE DIASTOLIC DECREASED [None]
  - COMPLICATIONS OF TRANSPLANTED KIDNEY [None]
  - CONFUSIONAL STATE [None]
  - HAEMOPTYSIS [None]
  - HYPERCOAGULATION [None]
  - KIDNEY TRANSPLANT REJECTION [None]
  - LEUKOCYTOSIS [None]
  - METABOLIC ENCEPHALOPATHY [None]
  - PNEUMONIA ASPIRATION [None]
  - PNEUMONIA KLEBSIELLA [None]
  - PNEUMONIA STAPHYLOCOCCAL [None]
  - PULMONARY OEDEMA [None]
  - RENAL INFARCT [None]
  - RENAL TRANSPLANT [None]
  - RESPIRATORY FAILURE [None]
  - THROMBOSIS [None]
  - TOXIC INDUCED ENCEPHALOPATHY [None]
